FAERS Safety Report 7214459-8 (Version None)
Quarter: 2011Q1

REPORT INFORMATION
  Report Type: 
  Country: None (occurrence: None)
  Receive Date: 20110107
  Receipt Date: 20110104
  Transmission Date: 20110831
  Serious: Yes (Death, Other)
  Sender: FDA-Public Use
  Company Number: PHHY2011AR00733

PATIENT
  Sex: Female

DRUGS (1)
  1. DIOVAN [Suspect]
     Indication: HYPERTENSION
     Dosage: 160 MG OF VALS

REACTIONS (3)
  - CARDIO-RESPIRATORY ARREST [None]
  - RESPIRATORY DISORDER [None]
  - CARDIAC DISORDER [None]
